FAERS Safety Report 4449389-8 (Version None)
Quarter: 2004Q3

REPORT INFORMATION
  Report Type: 
  Country: None (occurrence: None)
  Receive Date: 20040913
  Receipt Date: 20040830
  Transmission Date: 20050211
  Serious: Yes (Hospitalization)
  Sender: FDA-Public Use
  Company Number: PANC00304002028

PATIENT
  Age: 41 Week
  Sex: Male

DRUGS (10)
  1. CREON [Suspect]
     Indication: CYSTIC FIBROSIS
     Dosage: 2 DF DAILY PO, 4 DF DAILY PO
     Route: 048
     Dates: start: 20040526, end: 20040609
  2. CREON [Suspect]
     Indication: CYSTIC FIBROSIS
     Dosage: 2 DF DAILY PO, 4 DF DAILY PO
     Route: 048
     Dates: start: 20040609, end: 20040623
  3. BECOTIDE (BECLOMETASONE DIPROPIOANTE) [Concomitant]
  4. VENTOLIN [Concomitant]
  5. VIT K (VITAMIN K) [Concomitant]
  6. MOTILIUM [Concomitant]
  7. GAVISCON [Concomitant]
  8. RANITIDINE HYDROCHLORIDE [Concomitant]
  9. UVESTEROL [Concomitant]
  10. VITAMIN E [Concomitant]

REACTIONS (2)
  - CATHETER RELATED COMPLICATION [None]
  - PSEUDOMONAS INFECTION [None]
